FAERS Safety Report 15243669 (Version 1)
Quarter: 2018Q3

REPORT INFORMATION
  Report Type: Spontaneous
  Country: US (occurrence: US)
  Receive Date: 20180712
  Receipt Date: 20180712
  Transmission Date: 20181010
  Serious: Yes (Disabling)
  Sender: FDA-Public Use
  Company Number: None

PATIENT
  Age: 57 Year
  Sex: Female
  Weight: 72.57 kg

DRUGS (1)
  1. LEVOFLOAXCIN [Suspect]
     Active Substance: LEVOFLOXACIN
     Indication: UPPER RESPIRATORY TRACT INFECTION
     Dosage: ?          OTHER FREQUENCY:5 DAYS ;?
     Route: 048
     Dates: start: 20161202, end: 20161206

REACTIONS (3)
  - Tendon rupture [None]
  - Pain [None]
  - Swelling [None]

NARRATIVE: CASE EVENT DATE: 20161202
